FAERS Safety Report 4431465-7 (Version None)
Quarter: 2004Q3

REPORT INFORMATION
  Report Type: 
  Country: None (occurrence: None)
  Receive Date: 20040824
  Receipt Date: 20040621
  Transmission Date: 20050211
  Serious: Yes (Disabling)
  Sender: FDA-Public Use
  Company Number: JP-BRISTOL-MYERS SQUIBB COMPANY-12628889

PATIENT
  Age: 7 Month
  Sex: Male

DRUGS (1)
  1. IFOMIDE [Suspect]
     Indication: PRIMITIVE NEUROECTODERMAL TUMOUR
     Route: 041
     Dates: start: 19980825, end: 19981219

REACTIONS (3)
  - FAILURE TO THRIVE [None]
  - HYDRONEPHROSIS [None]
  - RENAL TUBULAR ACIDOSIS [None]
